FAERS Safety Report 8380951-6 (Version None)
Quarter: 2012Q1

REPORT INFORMATION
  Report Type: 
  Country: None (occurrence: None)
  Receive Date: 20120323
  Receipt Date: 20110411
  Transmission Date: 20120608
  Serious: Yes (Hospitalization)
  Sender: FDA-Public Use
  Company Number: 163-21880-11023173

PATIENT
  Age: 70 Year
  Sex: Female

DRUGS (1)
  1. REVLIMID [Suspect]
     Indication: MULTIPLE MYELOMA
     Dosage: 10 MG, DAILY 21/28 DAYS, PO
     Route: 048
     Dates: start: 20100601

REACTIONS (9)
  - VIRAL UPPER RESPIRATORY TRACT INFECTION [None]
  - CONFUSIONAL STATE [None]
  - DEHYDRATION [None]
  - PYREXIA [None]
  - NAUSEA [None]
  - DIARRHOEA [None]
  - BRONCHITIS [None]
  - SYNCOPE [None]
  - VOMITING [None]
